FAERS Safety Report 10332300 (Version 1)
Quarter: 2014Q3

REPORT INFORMATION
  Report Type: Spontaneous
  Country: NL (occurrence: NL)
  Receive Date: 20140722
  Receipt Date: 20140722
  Transmission Date: 20150326
  Serious: Yes (Hospitalization)
  Sender: FDA-Public Use
  Company Number: NL-JNJFOC-20140710564

PATIENT
  Age: 57 Year
  Sex: Female
  Weight: 90 kg

DRUGS (12)
  1. CARBASALATE CALCIUM [Concomitant]
     Active Substance: CARBASALATE
     Indication: CEREBROVASCULAR ACCIDENT
     Route: 048
     Dates: start: 2000
  2. SPIRONOLACTONE. [Concomitant]
     Active Substance: SPIRONOLACTONE
     Route: 048
  3. ALFACALCIDOL [Concomitant]
     Active Substance: ALFACALCIDOL
     Route: 048
  4. REMICADE [Suspect]
     Active Substance: INFLIXIMAB
     Indication: SKIN DISORDER
     Route: 042
     Dates: start: 201311, end: 201404
  5. METOPROLOL [Concomitant]
     Active Substance: METOPROLOL
     Dosage: DOSAGE NOT COMPLETED.??START/STOP DATE NOT COMPLETED.
     Route: 048
  6. RAMIPRIL. [Concomitant]
     Active Substance: RAMIPRIL
     Dosage: START DATE: LESS THAN 2010
     Route: 048
  7. LEVOTHYROXINE [Concomitant]
     Active Substance: LEVOTHYROXINE
     Indication: HYPOTHYROIDISM
     Dosage: START DATE: { 2012
     Route: 048
  8. ALLOPURINOL. [Concomitant]
     Active Substance: ALLOPURINOL
     Indication: GOUT
     Dosage: START DATE: LESS THAN 2103.
     Route: 048
  9. FUROSEMIDE. [Concomitant]
     Active Substance: FUROSEMIDE
     Dosage: DOSAGE NOT COMPLETED.START/STOP DATE NOT COMPLETED.
     Route: 048
  10. OMEPRAZOLE. [Concomitant]
     Active Substance: OMEPRAZOLE
     Dosage: DOSAGE NOT COMPLETED.??START/STOP DATE NOT COMPLETED.
     Route: 048
  11. PRAVASTATIN [Concomitant]
     Active Substance: PRAVASTATIN\PRAVASTATIN SODIUM
     Dosage: DOSAGE NOT COMPLETED.??START/STOP DATE NOT COMPLETED.
     Route: 048
  12. DOXAZOSIN [Concomitant]
     Active Substance: DOXAZOSIN\DOXAZOSIN MESYLATE
     Dosage: DOSAGE NOT COMPLETED.??START/STOP DATE NOT COMPLETED.
     Route: 048

REACTIONS (4)
  - Blood creatinine increased [Recovered/Resolved]
  - Colitis microscopic [Recovered/Resolved]
  - Diarrhoea [Recovered/Resolved]
  - Off label use [Unknown]

NARRATIVE: CASE EVENT DATE: 201311
